FAERS Safety Report 8043513-6 (Version None)
Quarter: 2012Q1

REPORT INFORMATION
  Report Type: 
  Country: None (occurrence: None)
  Receive Date: 20120112
  Receipt Date: 20120109
  Transmission Date: 20120608
  Serious: Yes (Congenital Anomaly, Other)
  Sender: FDA-Public Use
  Company Number: US-PFIZER INC-2012006088

PATIENT
  Sex: Male
  Weight: 2.2 kg

DRUGS (5)
  1. PRENATAL [Concomitant]
     Dosage: DAILY
     Route: 064
     Dates: start: 20081112
  2. ZOLOFT [Suspect]
     Indication: DEPRESSION
     Dosage: 25 MG, EVERY DAY
     Route: 064
     Dates: start: 20081209, end: 20081201
  3. PROMETHAZINE [Concomitant]
     Indication: NAUSEA
     Dosage: 25 MG, EVERY 6 HOURS AS NEEDED
     Route: 064
     Dates: start: 20081209
  4. ZOLOFT [Suspect]
     Dosage: 50 MG, EVERY DAY
     Route: 064
     Dates: start: 20081201
  5. ZITHROMAX [Concomitant]
     Indication: CHLAMYDIAL INFECTION
     Dosage: 1 G, UNK
     Route: 064
     Dates: start: 20090331

REACTIONS (4)
  - FOETAL GROWTH RESTRICTION [None]
  - FAILURE TO THRIVE [None]
  - MATERNAL EXPOSURE TIMING UNSPECIFIED [None]
  - GASTROSCHISIS [None]
